FAERS Safety Report 4595760-3 (Version None)
Quarter: 2005Q1

REPORT INFORMATION
  Report Type: 
  Country: None (occurrence: None)
  Receive Date: 20050224
  Receipt Date: 20050221
  Transmission Date: 20050727
  Serious: Yes (Disabling)
  Sender: FDA-Public Use
  Company Number: 2005033209

PATIENT
  Sex: Female
  Weight: 56 kg

DRUGS (3)
  1. DEPO-PROVERA [Suspect]
     Indication: CONTRACEPTION
     Dosage: SEE IMAGE, INTRAMUSCULAR
     Route: 030
     Dates: start: 20040801, end: 20040801
  2. DEPO-PROVERA [Suspect]
     Indication: CONTRACEPTION
     Dosage: SEE IMAGE, INTRAMUSCULAR
     Route: 030
     Dates: start: 20041001, end: 20041001
  3. DEPO-PROVERA [Suspect]
     Indication: CONTRACEPTION
     Dosage: SEE IMAGE, INTRAMUSCULAR
     Route: 030
     Dates: start: 20050113, end: 20050113

REACTIONS (15)
  - ABASIA [None]
  - ASTHENIA [None]
  - BLOOD CREATINE PHOSPHOKINASE INCREASED [None]
  - BUTTOCK PAIN [None]
  - DRUG INEFFECTIVE [None]
  - GENERALISED OEDEMA [None]
  - HYPERSENSITIVITY [None]
  - IMPAIRED WORK ABILITY [None]
  - INJECTION SITE DISCOLOURATION [None]
  - INJECTION SITE PAIN [None]
  - MYALGIA [None]
  - PAIN IN EXTREMITY [None]
  - PAIN OF SKIN [None]
  - SKIN DISORDER [None]
  - SKIN REACTION [None]
